FAERS Safety Report 17463599 (Version 1)
Quarter: 2020Q1

REPORT INFORMATION
  Report Type: Spontaneous
  Country: VN (occurrence: VN)
  Receive Date: 20200226
  Receipt Date: 20200226
  Transmission Date: 20200409
  Serious: Yes (Hospitalization)
  Sender: FDA-Public Use
  Company Number: VN-BAYER-2020-032552

PATIENT
  Age: 69 Year
  Sex: Male

DRUGS (1)
  1. ULTRAVIST [Suspect]
     Active Substance: IOPROMIDE
     Indication: COMPUTERISED TOMOGRAM THORAX
     Dosage: 75 ML, ONCE
     Route: 042
     Dates: start: 20200210, end: 20200210

REACTIONS (6)
  - Hypotension [Recovered/Resolved]
  - Seizure [Recovered/Resolved]
  - Syncope [Recovered/Resolved]
  - Foaming at mouth [Recovered/Resolved]
  - Urinary incontinence [Recovered/Resolved]
  - Defaecation disorder [Recovered/Resolved]

NARRATIVE: CASE EVENT DATE: 20200210
